FAERS Safety Report 12897890 (Version 1)
Quarter: 2016Q4

REPORT INFORMATION
  Report Type: Spontaneous
  Country: US (occurrence: US)
  Receive Date: 20161031
  Receipt Date: 20161031
  Transmission Date: 20170207
  Serious: Yes (Hospitalization, Other)
  Sender: FDA-Public Use
  Company Number: US-TEVA-707709USA

PATIENT
  Age: 14 Year
  Sex: Female

DRUGS (6)
  1. VINBLASTINE [Suspect]
     Active Substance: VINBLASTINE
     Indication: OVARIAN CANCER
     Route: 065
  2. DOXORUBICIN [Suspect]
     Active Substance: DOXORUBICIN
     Indication: OVARIAN CANCER
     Route: 065
  3. ETOPOSIDE. [Suspect]
     Active Substance: ETOPOSIDE
     Indication: OVARIAN CANCER
     Route: 065
  4. CYCLOPHOSPHAMIDE. [Suspect]
     Active Substance: CYCLOPHOSPHAMIDE
     Indication: OVARIAN CANCER
     Route: 065
  5. CISPLATIN. [Suspect]
     Active Substance: CISPLATIN
     Indication: OVARIAN CANCER
     Route: 065
  6. BLEOMYCIN [Suspect]
     Active Substance: BLEOMYCIN SULFATE
     Indication: OVARIAN CANCER
     Route: 065

REACTIONS (5)
  - Stomatitis [Unknown]
  - Pyrexia [Unknown]
  - Pancytopenia [Unknown]
  - Renal tubular necrosis [Unknown]
  - Hypovolaemic shock [Unknown]
